FAERS Safety Report 24914999 (Version 2)
Quarter: 2025Q1

REPORT INFORMATION
  Report Type: Spontaneous
  Country: CA (occurrence: CA)
  Receive Date: 20250203
  Receipt Date: 20250215
  Transmission Date: 20250408
  Serious: Yes (Other)
  Sender: CELLTRION
  Company Number: CA-PFIZER INC-202500020725

PATIENT

DRUGS (6)
  1. INFLECTRA [Suspect]
     Active Substance: INFLIXIMAB-DYYB
     Indication: Colitis ulcerative
     Route: 042
     Dates: start: 20241227
  2. INFLECTRA [Suspect]
     Active Substance: INFLIXIMAB-DYYB
     Route: 042
     Dates: start: 20250206
  3. CALCIUM [Concomitant]
     Active Substance: CALCIUM
  4. IMURAN [Concomitant]
     Active Substance: AZATHIOPRINE
  5. PREDNISONE [Concomitant]
     Active Substance: PREDNISONE
     Dates: start: 20240119
  6. CHOLECALCIFEROL [Concomitant]
     Active Substance: CHOLECALCIFEROL

REACTIONS (2)
  - Tooth disorder [Not Recovered/Not Resolved]
  - Tooth abscess [Not Recovered/Not Resolved]
